FAERS Safety Report 13789920 (Version 1)
Quarter: 2017Q3

REPORT INFORMATION
  Report Type: Spontaneous
  Country: US (occurrence: US)
  Receive Date: 20170725
  Receipt Date: 20170725
  Transmission Date: 20171127
  Serious: No
  Sender: FDA-Public Use
  Company Number: US-PFIZER INC-2017317586

PATIENT
  Sex: Female

DRUGS (2)
  1. METHOTREXATE SODIUM. [Suspect]
     Active Substance: METHOTREXATE SODIUM
     Dosage: 25 MG, UNK
     Route: 058
  2. CELEBREX [Suspect]
     Active Substance: CELECOXIB
     Dosage: 200 MG, DAILY

REACTIONS (13)
  - Musculoskeletal stiffness [Unknown]
  - Joint range of motion decreased [Unknown]
  - Dry eye [Unknown]
  - Hand deformity [Unknown]
  - Dyspnoea [Unknown]
  - Wheezing [Unknown]
  - Fatigue [Unknown]
  - Joint swelling [Unknown]
  - Synovitis [Unknown]
  - Arthralgia [Unknown]
  - Tenderness [Unknown]
  - Dry mouth [Unknown]
  - Foot deformity [Unknown]
